FAERS Safety Report 17549677 (Version 1)
Quarter: 2020Q1

REPORT INFORMATION
  Report Type: Spontaneous
  Country: DE (occurrence: DE)
  Receive Date: 20200317
  Receipt Date: 20200317
  Transmission Date: 20200409
  Serious: Yes (Hospitalization)
  Sender: FDA-Public Use
  Company Number: DE-TEVA-2020-DE-1202556

PATIENT
  Age: 93 Year
  Sex: Male
  Weight: 74 kg

DRUGS (10)
  1. ISMN 40 [Concomitant]
     Dosage: 40 MILLIGRAM DAILY; 40 MG, 1-0-0-0
  2. CORVATON [Concomitant]
     Active Substance: MOLSIDOMINE
     Dosage: NK MG, 0-0-1-0
  3. PREDNISOLONE. [Suspect]
     Active Substance: PREDNISOLONE
     Dosage: 5 MG/2, 0.5-0-0-0
  4. PHENPROCOUMON [Suspect]
     Active Substance: PHENPROCOUMON
     Dosage: 3 MG, BY VALUE
  5. ACC 200MG [Concomitant]
     Dosage: 200 MILLIGRAM DAILY; 200 MG, 1-0-0-0
  6. METOPROLOL. [Concomitant]
     Active Substance: METOPROLOL
     Dosage: 95 MILLIGRAM DAILY; 95 MG, 0.5-0-0-0
  7. PANTOPRAZOL [Concomitant]
     Active Substance: PANTOPRAZOLE SODIUM
     Dosage: 20 MILLIGRAM DAILY; 20 MG, 1-0-0-0
  8. DIGIMERCK [Concomitant]
     Active Substance: DIGITOXIN
     Dosage: .07 MILLIGRAM DAILY; 0.07 MG, 1-0-0-0
  9. CANDESARTAN. [Concomitant]
     Active Substance: CANDESARTAN
     Dosage: 4 MILLIGRAM DAILY; 4 MG, 0-0-0.5-0
  10. TORASEMID [Concomitant]
     Active Substance: TORSEMIDE
     Dosage: 10 MILLIGRAM DAILY; 10 MG, 1-0-0-0

REACTIONS (7)
  - General physical health deterioration [Unknown]
  - Anaemia [Unknown]
  - Pallor [Unknown]
  - Flatulence [Unknown]
  - Haematochezia [Unknown]
  - Dysphagia [Unknown]
  - Dyspepsia [Unknown]
